FAERS Safety Report 9773577 (Version 1)
Quarter: 2013Q4

REPORT INFORMATION
  Report Type: Spontaneous
  Country: GB (occurrence: None)
  Receive Date: 20131217
  Receipt Date: 20131217
  Transmission Date: 20140711
  Serious: Yes (Other)
  Sender: FDA-Public Use
  Company Number: KAD201312-001589

PATIENT
  Sex: 0

DRUGS (5)
  1. RIBAVIRIN [Suspect]
     Indication: HEPATITIS C
  2. INTERFERON ALFACON-1 [Suspect]
     Indication: HEPATITIS C
  3. CYCLOSPORIN [Suspect]
     Indication: PRODUCT USED FOR UNKNOWN INDICATION
  4. INCIVO [Suspect]
     Indication: HEPATITIS C
     Route: 048
  5. MYCOPHENOLATE MOFETIL [Suspect]

REACTIONS (3)
  - Blood count abnormal [None]
  - Neutrophil count decreased [None]
  - Off label use [None]
